FAERS Safety Report 23657391 (Version 1)
Quarter: 2024Q1

REPORT INFORMATION
  Report Type: Spontaneous
  Country: US (occurrence: US)
  Receive Date: 20240321
  Receipt Date: 20240321
  Transmission Date: 20240410
  Serious: Yes (Other)
  Sender: FDA-Public Use
  Company Number: US-PFIZER INC-202400068441

PATIENT
  Sex: Male

DRUGS (9)
  1. VANCOMYCIN HYDROCHLORIDE [Suspect]
     Active Substance: VANCOMYCIN HYDROCHLORIDE
     Indication: CNS ventriculitis
     Dosage: 30 MG/KG
  2. VANCOMYCIN HYDROCHLORIDE [Suspect]
     Active Substance: VANCOMYCIN HYDROCHLORIDE
     Indication: Staphylococcal infection
     Dosage: 20 MG/KG, 1X/DAY
  3. VANCOMYCIN HYDROCHLORIDE [Suspect]
     Active Substance: VANCOMYCIN HYDROCHLORIDE
     Dosage: 45 MG/KG, 1X/DAY
  4. VANCOMYCIN HYDROCHLORIDE [Suspect]
     Active Substance: VANCOMYCIN HYDROCHLORIDE
     Dosage: 60 MG/KG, 1X/DAY
  5. VANCOMYCIN HYDROCHLORIDE [Suspect]
     Active Substance: VANCOMYCIN HYDROCHLORIDE
     Dosage: 70 MG/KG, 1X/DAY
  6. CEFEPIME [Concomitant]
     Active Substance: CEFEPIME HYDROCHLORIDE
     Dosage: 150 MG/KG, 1X/DAY
  7. CEFTAROLINE [Concomitant]
     Active Substance: CEFTAROLINE
     Dosage: 10 MG/KG, 3X/DAY
     Route: 042
  8. RIFAMPIN [Concomitant]
     Active Substance: RIFAMPIN
     Indication: Staphylococcal infection
     Dosage: 20 MG/KG, 1X/DAY
  9. RIFAMPIN [Concomitant]
     Active Substance: RIFAMPIN
     Indication: CNS ventriculitis

REACTIONS (1)
  - Drug level below therapeutic [Unknown]
